FAERS Safety Report 12784293 (Version 1)
Quarter: 2016Q3

REPORT INFORMATION
  Report Type: Spontaneous
  Country: GB (occurrence: GB)
  Receive Date: 20160927
  Receipt Date: 20160927
  Transmission Date: 20161109
  Serious: Yes (Other)
  Sender: FDA-Public Use
  Company Number: GB-BEH-200100100BW

PATIENT
  Age: 5 Year
  Sex: Male

DRUGS (4)
  1. MONOCLATE-P [Suspect]
     Active Substance: ANTIHEMOPHILIC FACTOR HUMAN
     Indication: HAEMARTHROSIS
     Dosage: DAILY DOSE QUANTITY: 1000, DAILY DOSE UNIT: IU
     Route: 042
  2. MONOCLATE-P [Suspect]
     Active Substance: ANTIHEMOPHILIC FACTOR HUMAN
     Dates: start: 20010527
  3. MONOCLATE-P [Suspect]
     Active Substance: ANTIHEMOPHILIC FACTOR HUMAN
     Dates: start: 20010604
  4. HELIXATE [Concomitant]
     Active Substance: ANTIHEMOPHILIC FACTOR, HUMAN RECOMBINANT
     Dates: start: 1996

REACTIONS (5)
  - Crying [Recovered/Resolved]
  - Agitation [Recovered/Resolved]
  - Delirium [Recovered/Resolved]
  - Pyrexia [Recovered/Resolved]
  - Sudden onset of sleep [Recovered/Resolved]

NARRATIVE: CASE EVENT DATE: 20010513
